FAERS Safety Report 9729484 (Version 3)
Quarter: 2015Q3

REPORT INFORMATION
  Report Type: Spontaneous
  Country: US (occurrence: US)
  Receive Date: 20131204
  Receipt Date: 20150804
  Transmission Date: 20151125
  Serious: No
  Sender: FDA-Public Use
  Company Number: US-GILEAD-2009-0021613

PATIENT
  Age: 50 Year
  Sex: Female
  Weight: 38.56 kg

DRUGS (14)
  1. XANAX [Concomitant]
     Active Substance: ALPRAZOLAM
  2. VENTAVIS [Concomitant]
     Active Substance: ILOPROST
  3. LETAIRIS [Suspect]
     Active Substance: AMBRISENTAN
     Route: 048
     Dates: start: 20080226, end: 200904
  4. REVATIO [Concomitant]
     Active Substance: SILDENAFIL CITRATE
  5. COMBIVENT [Concomitant]
     Active Substance: ALBUTEROL SULFATE\IPRATROPIUM BROMIDE
  6. CEFUROXIME AXETIL. [Concomitant]
     Active Substance: CEFUROXIME AXETIL
  7. LETAIRIS [Suspect]
     Active Substance: AMBRISENTAN
     Indication: PULMONARY ARTERIAL HYPERTENSION
     Route: 048
     Dates: start: 200904
  8. PULMICORT TURBUHALER [Concomitant]
     Active Substance: BUDESONIDE
  9. OXYGEN. [Concomitant]
     Active Substance: OXYGEN
  10. IPRATR-ALBUTEROL [Concomitant]
  11. DRAMAMINE [Concomitant]
     Active Substance: DIMENHYDRINATE
  12. VASOTEC [Concomitant]
     Active Substance: ENALAPRIL MALEATE
  13. FUROSEMIDE. [Concomitant]
     Active Substance: FUROSEMIDE
  14. PREVACID [Concomitant]
     Active Substance: LANSOPRAZOLE

REACTIONS (1)
  - Dyspnoea [Unknown]

NARRATIVE: CASE EVENT DATE: 20090422
